FAERS Safety Report 16799034 (Version 2)
Quarter: 2019Q3

REPORT INFORMATION
  Report Type: Spontaneous
  Country: US (occurrence: US)
  Receive Date: 20190912
  Receipt Date: 20190912
  Transmission Date: 20191005
  Serious: Yes (Death)
  Sender: FDA-Public Use
  Company Number: US-PFIZER INC-2019376740

PATIENT
  Age: 65 Year
  Sex: Female

DRUGS (6)
  1. VANCOMYCIN HCL [Suspect]
     Active Substance: VANCOMYCIN HYDROCHLORIDE
     Indication: STREPTOCOCCAL ENDOCARDITIS
  2. GENTAMICIN SULFATE. [Suspect]
     Active Substance: GENTAMICIN SULFATE
     Indication: ENDOCARDITIS
     Dosage: 60 MG, 2X/DAY, (60 MG IV EVERY 12 H)
     Route: 042
  3. GENTAMICIN SULFATE. [Suspect]
     Active Substance: GENTAMICIN SULFATE
     Indication: ALPHA HAEMOLYTIC STREPTOCOCCAL INFECTION
  4. GENTAMICIN SULFATE. [Suspect]
     Active Substance: GENTAMICIN SULFATE
     Indication: STREPTOCOCCAL ENDOCARDITIS
  5. VANCOMYCIN HCL [Suspect]
     Active Substance: VANCOMYCIN HYDROCHLORIDE
     Indication: ALPHA HAEMOLYTIC STREPTOCOCCAL INFECTION
  6. VANCOMYCIN HCL [Suspect]
     Active Substance: VANCOMYCIN HYDROCHLORIDE
     Indication: ENDOCARDITIS
     Dosage: 1 G, 2X/DAY, (1 G IV EVERY 12 H)
     Route: 042

REACTIONS (5)
  - Short-bowel syndrome [Fatal]
  - Multiple organ dysfunction syndrome [Fatal]
  - Drug ineffective [Fatal]
  - Pancreatitis [Fatal]
  - Acute respiratory distress syndrome [Fatal]
